FAERS Safety Report 13261157 (Version 2)
Quarter: 2017Q1

REPORT INFORMATION
  Report Type: Spontaneous
  Country: GR (occurrence: GR)
  Receive Date: 20170222
  Receipt Date: 20170310
  Transmission Date: 20170428
  Serious: Yes (Other)
  Sender: FDA-Public Use
  Company Number: PHHY2017GR025538

PATIENT
  Age: 6 Year
  Sex: Male

DRUGS (1)
  1. EXJADE [Suspect]
     Active Substance: DEFERASIROX
     Indication: PRODUCT USED FOR UNKNOWN INDICATION
     Dosage: 31 MG/KG, UNK
     Route: 065
     Dates: start: 20100526

REACTIONS (5)
  - Albuminuria [Unknown]
  - Blood creatinine increased [Unknown]
  - Serum ferritin increased [Unknown]
  - Glycosuria [Recovering/Resolving]
  - Urine analysis abnormal [Unknown]

NARRATIVE: CASE EVENT DATE: 20140717
